FAERS Safety Report 4913000-X (Version None)
Quarter: 2006Q1

REPORT INFORMATION
  Report Type: 
  Country: None (occurrence: None)
  Receive Date: 20060210
  Receipt Date: 20060202
  Transmission Date: 20060701
  Serious: Yes (Hospitalization)
  Sender: FDA-Public Use
  Company Number: OSCN-PR-0602S-0036

PATIENT
  Age: 75 Year
  Sex: Female

DRUGS (1)
  1. OMNISCAN [Suspect]
     Dosage: 5 ML, SINGLE DOSE, EPIDURAL
     Route: 008
     Dates: start: 20060117, end: 20060117

REACTIONS (6)
  - CONVULSION [None]
  - INCORRECT ROUTE OF DRUG ADMINISTRATION [None]
  - INJECTION SITE EXTRAVASATION [None]
  - NAUSEA [None]
  - POST PROCEDURAL COMPLICATION [None]
  - RETCHING [None]
